FAERS Safety Report 18739708 (Version 3)
Quarter: 2021Q1

REPORT INFORMATION
  Report Type: Report from Study
  Country: MX (occurrence: MX)
  Receive Date: 20210114
  Receipt Date: 20210131
  Transmission Date: 20210419
  Serious: Yes (Other)
  Sender: FDA-Public Use
  Company Number: PHHY2016MX120404

PATIENT
  Sex: Male
  Weight: 130 kg

DRUGS (7)
  1. TRAVATAN [Suspect]
     Active Substance: TRAVOPROST
     Indication: EYE DISORDER
     Dosage: UNK
     Route: 065
  2. TRAVATAN [Suspect]
     Active Substance: TRAVOPROST
     Indication: OCULAR HYPERTENSION
     Dosage: 1 DF, QD (0.4 AS REPORTED) (DROP) (AT NIGHT IN EACH EYE)
     Route: 047
     Dates: start: 2016
  3. TAMSULOSIN [Concomitant]
     Active Substance: TAMSULOSIN
     Indication: PROSTATIC DISORDER
     Dosage: UNK
     Route: 065
  4. EXFORGE HCT [Suspect]
     Active Substance: AMLODIPINE BESYLATE\HYDROCHLOROTHIAZIDE\VALSARTAN
     Indication: HYPERTENSION
     Dosage: 1 DF (10 MG AMLODIPINE, 25 MG HYDROCHLOROTHIAZIDE AND 320 MG VALSARTAN), QD
     Route: 048
     Dates: start: 2015
  5. CORTISONE [Suspect]
     Active Substance: CORTISONE
     Indication: SURGERY
     Route: 065
  6. CORTISONE [Suspect]
     Active Substance: CORTISONE
     Dosage: 50 MG (USED ONCE)
     Route: 065
     Dates: start: 2016, end: 2016
  7. OMEPRAZOLE. [Concomitant]
     Active Substance: OMEPRAZOLE
     Indication: ABDOMINAL DISCOMFORT
     Dosage: 1 DF, QD (IN THE MORNING) STARTED 2 YEARS AGO
     Route: 048

REACTIONS (14)
  - Retinal detachment [Recovered/Resolved]
  - Optic nerve injury [Not Recovered/Not Resolved]
  - Visual impairment [Not Recovered/Not Resolved]
  - Inappropriate schedule of product administration [Unknown]
  - Wrong technique in product usage process [Unknown]
  - Product prescribing error [Unknown]
  - Blindness unilateral [Not Recovered/Not Resolved]
  - Myopia [Unknown]
  - Astigmatism [Unknown]
  - Hypertension [Unknown]
  - Weight increased [Not Recovered/Not Resolved]
  - Urinary retention [Recovered/Resolved]
  - Anger [Unknown]
  - Eye pain [Unknown]

NARRATIVE: CASE EVENT DATE: 2016
